FAERS Safety Report 7691963-X (Version None)
Quarter: 2011Q3

REPORT INFORMATION
  Report Type: 
  Country: None (occurrence: None)
  Receive Date: 20110818
  Receipt Date: 20110811
  Transmission Date: 20111222
  Serious: Yes (Other)
  Sender: FDA-Public Use
  Company Number: US-BAYER-2011-073807

PATIENT
  Age: 15 Year
  Sex: Female
  Weight: 117.1 kg

DRUGS (10)
  1. DROSPIRENONE AND ETHINYL ESTRADIOL [Suspect]
     Indication: ORAL CONTRACEPTION
     Dosage: UNK
     Dates: start: 20090707, end: 20090728
  2. UNCODEABLE ^UNCLASSIFIABLE^ [Concomitant]
  3. LOESTRIN 1.5/30 [Concomitant]
     Dosage: UNK
     Dates: start: 20090119, end: 20090612
  4. ZANTAC [Concomitant]
     Indication: FLATULENCE
  5. NEXIUM [Concomitant]
     Indication: GASTROOESOPHAGEAL REFLUX DISEASE
     Dosage: UNK
     Dates: start: 20090101
  6. ZANTAC [Concomitant]
     Indication: GASTROOESOPHAGEAL REFLUX DISEASE
     Dosage: UNK
     Dates: start: 20090101
  7. LORTAB [Concomitant]
  8. NEXIUM [Concomitant]
     Indication: FLATULENCE
  9. YASMIN [Suspect]
     Indication: ORAL CONTRACEPTION
     Dosage: UNK
     Dates: start: 20090707, end: 20091001
  10. AXID [Concomitant]

REACTIONS (4)
  - CHOLECYSTECTOMY [None]
  - CHOLECYSTITIS CHRONIC [None]
  - PAIN [None]
  - CHOLELITHIASIS [None]
